FAERS Safety Report 4675472-8 (Version None)
Quarter: 2005Q2

REPORT INFORMATION
  Report Type: 
  Country: None (occurrence: None)
  Receive Date: 20050527
  Receipt Date: 20050317
  Transmission Date: 20051028
  Serious: No
  Sender: FDA-Public Use
  Company Number: US-BRISTOL-MYERS SQUIBB COMPANY-12900981

PATIENT
  Age: 45 Year
  Sex: Male

DRUGS (4)
  1. ABILIFY [Suspect]
     Indication: AGGRESSION
     Route: 048
     Dates: start: 20040601
  2. ABILIFY [Suspect]
     Indication: PSYCHOTIC DISORDER
     Route: 048
     Dates: start: 20040601
  3. EFFEXOR [Concomitant]
  4. NEURONTIN [Concomitant]

REACTIONS (1)
  - DYSKINESIA [None]
